FAERS Safety Report 10011077 (Version 1)
Quarter: 2014Q1

REPORT INFORMATION
  Report Type: Spontaneous
  Country: SE (occurrence: None)
  Receive Date: 20140312
  Receipt Date: 20140312
  Transmission Date: 20141002
  Serious: Yes (Other)
  Sender: FDA-Public Use
  Company Number: 2014-000606

PATIENT
  Sex: Female

DRUGS (22)
  1. SARAFEM [Suspect]
     Indication: PRODUCT USED FOR UNKNOWN INDICATION
  2. STESOLID [Suspect]
     Indication: PRODUCT USED FOR UNKNOWN INDICATION
  3. OMEPRAZOLE (UNKNOWN) (OMEPRAZOLE) UNK, UNKUNK? [Suspect]
     Indication: PRODUCT USED FOR UNKNOWN INDICATION
  4. CETIRIZINE [Suspect]
  5. TOPIRAMATE (UNKNOWN) (TOPIRAMATE) [Suspect]
  6. ZYPREXA (OLANZAPINE) [Suspect]
  7. SEROQUEL (QUETIAPINE FUMARATE) [Suspect]
  8. LITHIONIT [Suspect]
  9. OXASCAND [Suspect]
  10. ZUCLOPENTHIXOL ACETATE [Suspect]
  11. HEMINEVRIN [Suspect]
  12. AKINETON [Suspect]
  13. THERALEN [Suspect]
  14. IMOVANE (ZOPICLONE) [Suspect]
  15. PROPAVAN [Suspect]
  16. SOBRIL [Suspect]
  17. ERGENYL (VALPROATE SODIUM) [Suspect]
  18. INVEGA (PALIPERIDONE) [Suspect]
  19. LEVOMEPROMAZINE [Suspect]
  20. PARGITAN [Suspect]
  21. QUETIAPINE [Suspect]
  22. HYDROXYZINE [Suspect]

REACTIONS (19)
  - Ovarian germ cell cancer stage II [None]
  - Amenorrhoea [None]
  - Weight increased [None]
  - Galactorrhoea [None]
  - Tremor [None]
  - Muscular weakness [None]
  - Agitation [None]
  - Dyspnoea [None]
  - Blood prolactin increased [None]
  - Palpitations [None]
  - Aggression [None]
  - Dyskinesia [None]
  - Abdominal pain [None]
  - Hyperhidrosis [None]
  - Swelling [None]
  - Muscle spasms [None]
  - Dysuria [None]
  - Breast enlargement [None]
  - Fatigue [None]
